FAERS Safety Report 6840189-8 (Version None)
Quarter: 2010Q3

REPORT INFORMATION
  Report Type: 
  Country: None (occurrence: None)
  Receive Date: 20100713
  Receipt Date: 20100713
  Transmission Date: 20110219
  Serious: Yes (Hospitalization)
  Sender: FDA-Public Use
  Company Number: None

PATIENT
  Age: 38 Year
  Sex: Female
  Weight: 78 kg

DRUGS (2)
  1. YAZ [Suspect]
     Indication: CONTRACEPTION
     Dosage: 0.02/3 -24- TAB -28 EA- 1 PILL/DAY PO
     Route: 048
     Dates: start: 20070801, end: 20100228
  2. YAZ [Suspect]
     Indication: MENSTRUAL CYCLE MANAGEMENT
     Dosage: 0.02/3 -24- TAB -28 EA- 1 PILL/DAY PO
     Route: 048
     Dates: start: 20070801, end: 20100228

REACTIONS (3)
  - ABDOMINAL PAIN [None]
  - CHOLECYSTECTOMY [None]
  - GALLBLADDER DISORDER [None]
